FAERS Safety Report 8532453-1 (Version None)
Quarter: 2012Q3

REPORT INFORMATION
  Report Type: 
  Country: None (occurrence: None)
  Receive Date: 20120716
  Receipt Date: 20120716
  Transmission Date: 20120928
  Serious: Yes (Life-Threatening, Hospitalization, Disabling)
  Sender: FDA-Public Use
  Company Number: None

PATIENT
  Age: 71 Year
  Sex: Male
  Weight: 86 kg

DRUGS (6)
  1. PRADAXA [Suspect]
     Indication: ATRIAL FIBRILLATION
     Dosage: 1 TAB Q12HR PO
     Route: 048
     Dates: start: 20120601, end: 20120711
  2. LISINOPRIL [Concomitant]
  3. FLONASE [Concomitant]
  4. DIGOXIN [Concomitant]
  5. HYZAAR [Concomitant]
  6. VERAPAMIL [Concomitant]

REACTIONS (1)
  - CEREBROVASCULAR ACCIDENT [None]
